FAERS Safety Report 11865672 (Version 1)
Quarter: 2015Q4

REPORT INFORMATION
  Report Type: Other
  Country: CH (occurrence: CH)
  Receive Date: 20151223
  Receipt Date: 20151223
  Transmission Date: 20160305
  Serious: Yes (Hospitalization)
  Sender: FDA-Public Use
  Company Number: CH-SYMPLMED PHARMACEUTICALS-2015SYMPLMED000103

PATIENT

DRUGS (9)
  1. RESVERATROL [Suspect]
     Active Substance: RESVERATROL
     Indication: PRODUCT USED FOR UNKNOWN INDICATION
     Dosage: 100 MG, QD
     Route: 048
     Dates: start: 20151002, end: 20151006
  2. ALLOPURINOL. [Suspect]
     Active Substance: ALLOPURINOL
     Indication: PRODUCT USED FOR UNKNOWN INDICATION
     Dosage: 300 MG, QD
     Route: 048
     Dates: start: 2014, end: 20151018
  3. TEA [Suspect]
     Active Substance: TEA LEAF
     Indication: OBESITY
     Dosage: 50 MG, QD
     Route: 048
     Dates: start: 20151002, end: 20151006
  4. CHROMIUM PICOLINATE [Suspect]
     Active Substance: CHROMIUM PICOLINATE
     Indication: PRODUCT USED FOR UNKNOWN INDICATION
     Dosage: 4 MG, QD
     Route: 048
     Dates: start: 20151002, end: 20151006
  5. LEVOCARNITINE FUMARATE [Suspect]
     Active Substance: LEVOCARNITINE FUMARATE
     Indication: OBESITY
     Dosage: 150 MG, QD
     Route: 048
     Dates: start: 20151002, end: 20151006
  6. CINNAMOMUM VERUM BARK [Suspect]
     Active Substance: CINNAMON
     Indication: PRODUCT USED FOR UNKNOWN INDICATION
     Dosage: 200 MG, QD
     Route: 048
     Dates: start: 20151002, end: 20151006
  7. VENTOLIN [Concomitant]
     Active Substance: ALBUTEROL SULFATE
     Indication: PRODUCT USED FOR UNKNOWN INDICATION
     Dosage: UNK
  8. L-GLUTAMINE                        /00503401/ [Suspect]
     Active Substance: GLUTAMINE
     Indication: PRODUCT USED FOR UNKNOWN INDICATION
     Dosage: UNK
  9. COVERAM [Suspect]
     Active Substance: AMLODIPINE\PERINDOPRIL
     Indication: PRODUCT USED FOR UNKNOWN INDICATION
     Dosage: 1 DF, QD
     Route: 048
     Dates: end: 20151022

REACTIONS (14)
  - Haematuria [Unknown]
  - Hyperphosphataemia [Not Recovered/Not Resolved]
  - Acute kidney injury [Recovered/Resolved]
  - Hyperkalaemia [Unknown]
  - Vomiting [Recovered/Resolved]
  - Hypocalcaemia [Not Recovered/Not Resolved]
  - Acute prerenal failure [Recovered/Resolved]
  - Nausea [Recovered/Resolved]
  - Metabolic acidosis [Unknown]
  - Diarrhoea [Recovered/Resolved]
  - Tubulointerstitial nephritis [Recovered/Resolved with Sequelae]
  - Renal tubular necrosis [Recovered/Resolved]
  - Dehydration [Unknown]
  - Blood creatine phosphokinase increased [Unknown]

NARRATIVE: CASE EVENT DATE: 20151006
